FAERS Safety Report 10944763 (Version 2)
Quarter: 2015Q2

REPORT INFORMATION
  Report Type: Report from Study
  Country: US (occurrence: US)
  Receive Date: 20150323
  Receipt Date: 20150402
  Transmission Date: 20150821
  Serious: Yes (Hospitalization)
  Sender: FDA-Public Use
  Company Number: PHEH2015US005022

PATIENT
  Age: 54 Year
  Sex: Female

DRUGS (4)
  1. EXTAVIA [Suspect]
     Active Substance: INTERFERON BETA-1B
     Indication: MULTIPLE SCLEROSIS
     Dosage: 0.25 ML, QOD (WEEKS 1 TO 2; 0.0625 MG)
     Route: 058
     Dates: start: 20150105
  2. EXTAVIA [Suspect]
     Active Substance: INTERFERON BETA-1B
     Dosage: 1 ML, QOD (WEEK 7 PLUS 0.25 MG)
     Route: 058
  3. EXTAVIA [Suspect]
     Active Substance: INTERFERON BETA-1B
     Dosage: 0.5 ML, QOD (WEEKS 3 TO 4; 0.125 MG)
     Route: 058
  4. EXTAVIA [Suspect]
     Active Substance: INTERFERON BETA-1B
     Dosage: 0.75 ML, QOD (WEEKS 5 TO 6; 0.1875 MG)
     Route: 058

REACTIONS (4)
  - Fatigue [Unknown]
  - Anaemia [Unknown]
  - Epistaxis [Not Recovered/Not Resolved]
  - White blood cell count increased [Unknown]

NARRATIVE: CASE EVENT DATE: 20150310
